FAERS Safety Report 4396739-7 (Version None)
Quarter: 2004Q3

REPORT INFORMATION
  Report Type: 
  Country: None (occurrence: None)
  Receive Date: 20040709
  Receipt Date: 20040628
  Transmission Date: 20050211
  Serious: Yes (Death)
  Sender: FDA-Public Use
  Company Number: 2004221709ES

PATIENT
  Age: 42 Year
  Sex: Male

DRUGS (6)
  1. DOXORUBICIN HYDROCHLORIDE [Suspect]
     Dosage: ONE CYCLE
  2. CYCLOPHOSPHAMIDE [Suspect]
     Indication: LYMPHOMA
     Dosage: ONE CYCLE
  3. VINCRISTINE SULFATE [Suspect]
     Indication: LYMPHOMA
     Dosage: ONE CYCLE
  4. DELTASONE [Suspect]
     Indication: LYMPHOMA
     Dosage: ONE CYCLE
  5. METHOTREXATE [Suspect]
     Indication: PROPHYLAXIS
     Dosage: ONE CYCLE, INTRATHECAL
     Route: 039
  6. CYTARABINE [Suspect]
     Indication: PROPHYLAXIS
     Dosage: ONE CYCLE, INTRATHEAL
     Route: 039

REACTIONS (2)
  - RESPIRATORY FAILURE [None]
  - SEPTIC SHOCK [None]
